FAERS Safety Report 20685546 (Version 1)
Quarter: 2022Q2

REPORT INFORMATION
  Report Type: Spontaneous
  Country: CN (occurrence: CN)
  Receive Date: 20220407
  Receipt Date: 20220407
  Transmission Date: 20220721
  Serious: Yes (Life-Threatening)
  Sender: FDA-Public Use
  Company Number: CN-PFIZER INC-202200483350

PATIENT
  Age: 24 Year
  Sex: Male
  Weight: 70 kg

DRUGS (1)
  1. VFEND [Suspect]
     Active Substance: VORICONAZOLE
     Indication: Anti-infective therapy
     Dosage: 0.2 G, 2X/DAY
     Route: 041
     Dates: start: 20220314, end: 20220319

REACTIONS (5)
  - Bradycardia [Recovering/Resolving]
  - Heart rate decreased [Recovering/Resolving]
  - Blood pressure decreased [Recovering/Resolving]
  - Oxygen saturation decreased [Recovering/Resolving]
  - Altered state of consciousness [Recovering/Resolving]

NARRATIVE: CASE EVENT DATE: 20220319
